FAERS Safety Report 19388955 (Version 2)
Quarter: 2025Q2

REPORT INFORMATION
  Report Type: Spontaneous
  Country: US (occurrence: US)
  Receive Date: 20210608
  Receipt Date: 20250628
  Transmission Date: 20250717
  Serious: Yes (Hospitalization)
  Sender: AUROBINDO
  Company Number: US-MYLANLABS-2021M1033117

PATIENT
  Age: 21 Year
  Sex: Female

DRUGS (12)
  1. MEMANTINE [Suspect]
     Active Substance: MEMANTINE
     Indication: Catatonia
     Dosage: 5 MILLIGRAM, ONCE A DAY  (STARTING DOSE; INCREASED AFTER IMPROVEMENT WAS AFTER 3 DAYS OF TREATMENT)
     Route: 065
  2. MEMANTINE [Suspect]
     Active Substance: MEMANTINE
     Dosage: 15 MILLIGRAM, ONCE A DAY (10 MG IN THE MORNING AND 5 MG AT NIGHT)
     Route: 065
  3. MEMANTINE [Suspect]
     Active Substance: MEMANTINE
     Dosage: 10 MILLIGRAM, ONCE A DAY  (DURING ECT)
     Route: 065
  4. NITROFURANTOIN [Suspect]
     Active Substance: NITROFURANTOIN
     Indication: Urinary tract infection
     Route: 065
  5. LORAZEPAM [Suspect]
     Active Substance: LORAZEPAM
     Indication: Catatonia
     Dosage: 1 MILLIGRAM, ONCE A DAY
     Route: 065
  6. LORAZEPAM [Suspect]
     Active Substance: LORAZEPAM
     Dosage: 1 KILOGRAM, 3 TIMES A DAY
     Route: 065
  7. LORAZEPAM [Suspect]
     Active Substance: LORAZEPAM
     Dosage: 1 MILLIGRAM, TWO TIMES A DAY (DURING ELECTROCONVULSIVE THERAPY)
     Route: 065
  8. RISPERIDONE [Suspect]
     Active Substance: RISPERIDONE
     Indication: Psychomotor retardation
     Dosage: 4 MILLIGRAM, ONCE A DAY (1MG IN MORNING AND 3MG AT BEDTIME)
     Route: 065
  9. RISPERIDONE [Suspect]
     Active Substance: RISPERIDONE
     Indication: Speech disorder
  10. RISPERIDONE [Suspect]
     Active Substance: RISPERIDONE
     Indication: Abnormal behaviour
  11. PENICILLIN G [Suspect]
     Active Substance: PENICILLIN G
     Indication: Syphilis
     Route: 065
  12. FOLIC ACID [Suspect]
     Active Substance: FOLIC ACID
     Indication: Product used for unknown indication
     Route: 065

REACTIONS (6)
  - Premature rupture of membranes [Recovering/Resolving]
  - Premature delivery [Recovering/Resolving]
  - Catatonia [Recovered/Resolved]
  - Condition aggravated [Recovered/Resolved]
  - Maternal exposure during pregnancy [Unknown]
  - Off label use [Unknown]
